FAERS Safety Report 14352525 (Version 4)
Quarter: 2018Q3

REPORT INFORMATION
  Report Type: Spontaneous
  Country: US (occurrence: US)
  Receive Date: 20180104
  Receipt Date: 20180913
  Transmission Date: 20181010
  Serious: No
  Sender: FDA-Public Use
  Company Number: US-ACTELION-A-NJ2017-164982

PATIENT
  Age: 77 Year
  Sex: Female
  Weight: 25.4 kg

DRUGS (3)
  1. ZOLOFT [Concomitant]
     Active Substance: SERTRALINE HYDROCHLORIDE
     Dosage: 75 MG, UNK
  2. SILDENAFIL CITRATE. [Concomitant]
     Active Substance: SILDENAFIL CITRATE
  3. TRACLEER [Suspect]
     Active Substance: BOSENTAN
     Indication: PULMONARY HYPERTENSION
     Dosage: 125 MG, BID
     Route: 048

REACTIONS (15)
  - Syncope [Unknown]
  - Nausea [Unknown]
  - Fluid overload [Unknown]
  - Cough [Unknown]
  - Oedema peripheral [Unknown]
  - Paranasal sinus hypersecretion [Unknown]
  - Dizziness [Unknown]
  - Vomiting [Unknown]
  - Chest pain [Unknown]
  - Malaise [Unknown]
  - Vertigo [Unknown]
  - Diarrhoea [Unknown]
  - Fatigue [Unknown]
  - Fall [Unknown]
  - Dyspnoea exertional [Unknown]

NARRATIVE: CASE EVENT DATE: 201712
